FAERS Safety Report 4376013-5 (Version None)
Quarter: 2004Q2

REPORT INFORMATION
  Report Type: 
  Country: None (occurrence: None)
  Receive Date: 20040607
  Receipt Date: 20040521
  Transmission Date: 20050107
  Serious: Yes (Other)
  Sender: FDA-Public Use
  Company Number: 2004215040AU

PATIENT
  Sex: Female

DRUGS (2)
  1. XALATAN [Suspect]
     Dosage: OPHTHALMIC
     Route: 047
  2. BION TEARS (HYPROMELLOSE, DEXTRAN 70) [Concomitant]

REACTIONS (3)
  - ERYTHEMA OF EYELID [None]
  - EYE DISORDER [None]
  - EYE LASER SURGERY [None]
